FAERS Safety Report 24719746 (Version 1)
Quarter: 2024Q4

REPORT INFORMATION
  Report Type: Spontaneous
  Country: BR (occurrence: BR)
  Receive Date: 20241211
  Receipt Date: 20241211
  Transmission Date: 20250115
  Serious: Yes (Other)
  Sender: NOVARTIS
  Company Number: BR-002147023-NVSC2024BR233595

PATIENT
  Age: 62 Year
  Sex: Female

DRUGS (4)
  1. KISQALI [Suspect]
     Active Substance: RIBOCICLIB
     Indication: Breast cancer
     Dosage: UNK (FOR 3 YEARS)
     Route: 065
     Dates: start: 2020, end: 2023
  2. KISQALI [Suspect]
     Active Substance: RIBOCICLIB
     Indication: Metastases to bone
  3. LETROZOLE [Suspect]
     Active Substance: LETROZOLE
     Indication: Breast cancer
     Dosage: UNK (FOR 3 YEARS)
     Route: 065
     Dates: start: 2020, end: 2023
  4. LETROZOLE [Suspect]
     Active Substance: LETROZOLE
     Indication: Metastases to bone

REACTIONS (4)
  - Spinal cord compression [Unknown]
  - Sacral pain [Unknown]
  - Back pain [Unknown]
  - Spinal pain [Unknown]
